FAERS Safety Report 8779485 (Version 1)
Quarter: 2012Q4

REPORT INFORMATION
  Report Type: 
  Country: US (occurrence: US)
  Receive Date: 20120912
  Receipt Date: 20120912
  Transmission Date: 20130627
  Serious: Yes (Death)
  Sender: FDA-Public Use
  Company Number: US-ROCHE-1116231

PATIENT
  Age: 17 Year
  Sex: Female

DRUGS (5)
  1. MYCOPHENOLATE MOFETIL [Suspect]
     Indication: PROPHYLAXIS AGAINST TRANSPLANT REJECTION
  2. SOLU-MEDROL [Suspect]
     Indication: PROPHYLAXIS AGAINST TRANSPLANT REJECTION
  3. TACROLIMUS [Suspect]
     Indication: PROPHYLAXIS AGAINST TRANSPLANT REJECTION
  4. GANCICLOVIR [Concomitant]
     Route: 042
  5. VALGANCICLOVIR [Concomitant]
     Route: 048

REACTIONS (3)
  - Post transplant lymphoproliferative disorder [Fatal]
  - Epstein-Barr viraemia [Unknown]
  - Cytomegalovirus infection [Unknown]
